FAERS Safety Report 9179838 (Version 1)
Quarter: 2013Q1

REPORT INFORMATION
  Report Type: Spontaneous
  Country: BR (occurrence: BR)
  Receive Date: 20130321
  Receipt Date: 20130321
  Transmission Date: 20140127
  Serious: Yes (Other)
  Sender: FDA-Public Use
  Company Number: BR-PFIZER INC-2013091393

PATIENT
  Age: 73 Year
  Sex: Male
  Weight: 93 kg

DRUGS (1)
  1. CARDURAN [Suspect]
     Indication: PROSTATIC DISORDER
     Dosage: 1X/DAY
     Route: 048
     Dates: start: 2006, end: 20110318

REACTIONS (1)
  - Prostatic disorder [Unknown]
